FAERS Safety Report 10437247 (Version 1)
Quarter: 2014Q3

REPORT INFORMATION
  Report Type: Spontaneous
  Country: US (occurrence: US)
  Receive Date: 20140908
  Receipt Date: 20140908
  Transmission Date: 20150326
  Serious: No
  Sender: FDA-Public Use
  Company Number: US-BRISTOL-MYERS SQUIBB COMPANY-20933107

PATIENT
  Age: 25 Year
  Sex: Male

DRUGS (3)
  1. INDERAL [Concomitant]
     Active Substance: PROPRANOLOL HYDROCHLORIDE
  2. LITHIUM [Concomitant]
     Active Substance: LITHIUM CARBONATE
  3. ABILIFY [Suspect]
     Active Substance: ARIPIPRAZOLE
     Indication: BIPOLAR I DISORDER

REACTIONS (1)
  - Akathisia [Recovered/Resolved]
